FAERS Safety Report 16245797 (Version 1)
Quarter: 2019Q2

REPORT INFORMATION
  Report Type: Spontaneous
  Country: TW (occurrence: TW)
  Receive Date: 20190426
  Receipt Date: 20190426
  Transmission Date: 20190711
  Serious: Yes (Other)
  Sender: FDA-Public Use
  Company Number: TW-ELI_LILLY_AND_COMPANY-TW201904012410

PATIENT
  Age: 77 Year
  Sex: Male
  Weight: 69 kg

DRUGS (3)
  1. ERBITUX [Suspect]
     Active Substance: CETUXIMAB
     Indication: COLON CANCER METASTATIC
     Dosage: 900 MG, UNK
     Route: 041
     Dates: start: 20180925, end: 20181031
  2. CAMPTO [Concomitant]
     Active Substance: IRINOTECAN
     Indication: COLON CANCER METASTATIC
     Dosage: 264 MG, UNK
     Route: 041
     Dates: start: 20180911
  3. FLUOROURACIL. [Concomitant]
     Active Substance: FLUOROURACIL
     Indication: COLON CANCER METASTATIC
     Dosage: 2112 MG, UNK
     Route: 065
     Dates: start: 20180911

REACTIONS (9)
  - Anaemia [Unknown]
  - Decreased appetite [Unknown]
  - Stomatitis [Unknown]
  - Neutropenia [Unknown]
  - Diarrhoea [Unknown]
  - Leukopenia [Unknown]
  - Nausea [Unknown]
  - Vomiting [Unknown]
  - Asthenia [Unknown]

NARRATIVE: CASE EVENT DATE: 2018
